FAERS Safety Report 23792572 (Version 1)
Quarter: 2024Q2

REPORT INFORMATION
  Report Type: Spontaneous
  Country: US (occurrence: US)
  Receive Date: 20240429
  Receipt Date: 20240429
  Transmission Date: 20240715
  Serious: No
  Sender: FDA-Public Use
  Company Number: US-APOTEX-2024AP004669

PATIENT
  Age: 53 Year
  Sex: Female

DRUGS (4)
  1. LETROZOLE [Suspect]
     Active Substance: LETROZOLE
     Indication: Ovarian granulosa cell tumour
     Dosage: 2.5 MILLIGRAM, QD, 28 DAYS CYCLE
     Route: 048
  2. LETROZOLE [Suspect]
     Active Substance: LETROZOLE
     Indication: Ovarian cancer recurrent
  3. PALBOCICLIB [Concomitant]
     Active Substance: PALBOCICLIB
     Indication: Ovarian granulosa cell tumour
     Dosage: 125 MILLIGRAM FOR DAYS 1-21 FOR EACH 28- DAY CYCLE
     Route: 048
  4. PALBOCICLIB [Concomitant]
     Active Substance: PALBOCICLIB
     Indication: Ovarian cancer recurrent

REACTIONS (1)
  - Drug intolerance [Unknown]
